FAERS Safety Report 9090107 (Version 1)
Quarter: 2013Q1

REPORT INFORMATION
  Report Type: Report from Study
  Country: US (occurrence: US)
  Receive Date: 20130218
  Receipt Date: 20130218
  Transmission Date: 20140127
  Serious: No
  Sender: FDA-Public Use
  Company Number: US-ABBOTT-12P-163-0931539-00

PATIENT
  Sex: Female
  Weight: 86.26 kg

DRUGS (3)
  1. SIMCOR [Suspect]
     Indication: PRODUCT USED FOR UNKNOWN INDICATION
     Dates: start: 200904, end: 201111
  2. SIMCOR [Suspect]
     Dates: start: 201204
  3. FLONASE [Concomitant]
     Indication: PRODUCT USED FOR UNKNOWN INDICATION

REACTIONS (4)
  - Foreign body [Unknown]
  - Flushing [Unknown]
  - Feeling hot [Unknown]
  - Erythema [Unknown]
